FAERS Safety Report 8936293 (Version 2)
Quarter: 2012Q4

REPORT INFORMATION
  Report Type: Spontaneous
  Country: DK (occurrence: None)
  Receive Date: 20120810
  Receipt Date: 20120824
  Transmission Date: 20130627
  Serious: Yes (Death)
  Sender: FDA-Public Use
  Company Number: 2012MA008375

PATIENT
  Age: 45 Year
  Sex: Male

DRUGS (6)
  1. MIRTAZAPINE [Suspect]
     Indication: DEPRESSED MOOD
     Route: 048
  2. MIRTAZAPINE [Suspect]
     Indication: DEPRESSED MOOD
     Route: 048
  3. CITALOPRAM [Suspect]
     Indication: DEPRESSED MOOD
     Route: 048
  4. ARIPIPRAZOLE [Suspect]
     Indication: SCHIZOPHRENIA
     Route: 048
  5. CLOZAPINE [Suspect]
     Indication: SCHIZOPHRENIA
     Route: 048
  6. CLOZARIL [Suspect]
     Route: 048
     Dates: start: 20010701

REACTIONS (3)
  - Cardiac failure congestive [None]
  - Congestive cardiomyopathy [None]
  - Antipsychotic drug level above therapeutic [None]
